FAERS Safety Report 8337632 (Version 20)
Quarter: 2015Q1

REPORT INFORMATION
  Report Type: Spontaneous
  Country: US (occurrence: US)
  Receive Date: 20120116
  Receipt Date: 20150302
  Transmission Date: 20150721
  Serious: Yes (Life-Threatening, Hospitalization, Disabling)
  Sender: FDA-Public Use
  Company Number: US-JNJFOC-20111104991

PATIENT
  Age: 23 Year
  Sex: Female
  Weight: 68.2 kg

DRUGS (10)
  1. TYLENOL SINUS CONGESTION PAIN [Concomitant]
     Indication: SINUS HEADACHE
  2. VICKS NYQUIL [Concomitant]
     Active Substance: ACETAMINOPHEN\DEXTROMETHORPHAN HYDROBROMIDE\DOXYLAMINE SUCCINATE
     Indication: INFLUENZA
  3. YAZ [Concomitant]
     Active Substance: DROSPIRENONE\ETHINYL ESTRADIOL
     Indication: PRODUCT USED FOR UNKNOWN INDICATION
  4. EXCEDRIN MIGRAINE [Concomitant]
     Active Substance: ACETAMINOPHEN\ASPIRIN\CAFFEINE
     Indication: MIGRAINE
  5. VICKS NYQUIL [Concomitant]
     Active Substance: ACETAMINOPHEN\DEXTROMETHORPHAN HYDROBROMIDE\DOXYLAMINE SUCCINATE
     Indication: PAIN
  6. TYLENOL EXTRA STRENGTH [Suspect]
     Active Substance: ACETAMINOPHEN
     Route: 048
  7. TYLENOL COLD + FLU [Suspect]
     Active Substance: ACETAMINOPHEN\DEXTROMETHORPHAN\PSEUDOEPHEDRINE
     Indication: INFLUENZA LIKE ILLNESS
     Route: 065
     Dates: start: 20091127, end: 20091128
  8. TYLENOL EXTRA STRENGTH [Suspect]
     Active Substance: ACETAMINOPHEN
     Indication: INFLUENZA LIKE ILLNESS
     Dosage: 2 EVERY 4-6 HOURS
     Route: 048
     Dates: start: 20091126, end: 20091128
  9. ALLEGRA [Concomitant]
     Active Substance: FEXOFENADINE HYDROCHLORIDE
     Indication: PRODUCT USED FOR UNKNOWN INDICATION
  10. HYDROCODONE-IBUPROFEN [Concomitant]
     Indication: PAIN
     Dosage: EVERY 4 HOURS AS NEEDED

REACTIONS (8)
  - Hepatic encephalopathy [Unknown]
  - Coagulopathy [Unknown]
  - Injury [Unknown]
  - Hepatorenal failure [Recovered/Resolved]
  - Ankle operation [Not Recovered/Not Resolved]
  - Acute hepatic failure [Recovered/Resolved with Sequelae]
  - Overdose [Recovered/Resolved with Sequelae]
  - Amputation [Unknown]

NARRATIVE: CASE EVENT DATE: 200911
